FAERS Safety Report 6566795-6 (Version None)
Quarter: 2010Q1

REPORT INFORMATION
  Report Type: 
  Country: None (occurrence: None)
  Receive Date: 20100202
  Receipt Date: 20100127
  Transmission Date: 20100710
  Serious: Yes (Hospitalization)
  Sender: FDA-Public Use
  Company Number: B0630340A

PATIENT
  Sex: Male

DRUGS (1)
  1. ALLI [Suspect]
     Indication: OBESITY
     Route: 065

REACTIONS (2)
  - AUTOIMMUNE THYROIDITIS [None]
  - THYROID FUNCTION TEST ABNORMAL [None]
